FAERS Safety Report 4611056-5 (Version None)
Quarter: 2005Q1

REPORT INFORMATION
  Report Type: 
  Country: None (occurrence: None)
  Receive Date: 20050315
  Receipt Date: 20050315
  Transmission Date: 20050727
  Serious: Yes (Other)
  Sender: FDA-Public Use
  Company Number: None

PATIENT
  Sex: Female
  Weight: 90.7194 kg

DRUGS (4)
  1. WARFARIN 2.5MG, 5MG, 7.5MG [Suspect]
     Indication: KNEE ARTHROPLASTY
     Dosage: 5MG QD, 5MG ALT W/ 7.5MG
     Dates: start: 20041001
  2. WARFARIN 2.5MG, 5MG, 7.5MG [Suspect]
     Indication: THROMBOSIS PROPHYLAXIS
     Dosage: 5MG QD, 5MG ALT W/ 7.5MG
     Dates: start: 20041001
  3. VICODIN [Concomitant]
  4. AMBIEN [Concomitant]

REACTIONS (2)
  - COAGULOPATHY [None]
  - PHARMACEUTICAL PRODUCT COMPLAINT [None]
